FAERS Safety Report 13367256 (Version 2)
Quarter: 2017Q2

REPORT INFORMATION
  Report Type: Report from Study
  Country: US (occurrence: US)
  Receive Date: 20170324
  Receipt Date: 20170407
  Transmission Date: 20170830
  Serious: Yes (Life-Threatening, Hospitalization, Other)
  Sender: FDA-Public Use
  Company Number: US-GILEAD-2017-0260069

PATIENT
  Age: 10 Year
  Sex: Male
  Weight: 10.93 kg

DRUGS (5)
  1. AMBRISENTAN [Suspect]
     Active Substance: AMBRISENTAN
     Indication: PRODUCT USED FOR UNKNOWN INDICATION
     Dosage: 5 MG, QD
     Route: 048
     Dates: start: 20150827
  2. LOSARTAN. [Concomitant]
     Active Substance: LOSARTAN
  3. CHOLECALCIFEROL [Concomitant]
     Active Substance: CHOLECALCIFEROL
  4. ADCIRCA [Concomitant]
     Active Substance: TADALAFIL
  5. MEGESTROL [Concomitant]
     Active Substance: MEGESTROL

REACTIONS (7)
  - Cough [Recovered/Resolved]
  - Off label use [Not Recovered/Not Resolved]
  - Cerebral haemorrhage [Unknown]
  - Headache [Recovered/Resolved]
  - Dizziness [Recovered/Resolved]
  - Haemangioma [Recovered/Resolved]
  - Dyspnoea [Recovered/Resolved]

NARRATIVE: CASE EVENT DATE: 19980827
